FAERS Safety Report 5843766-6 (Version None)
Quarter: 2008Q3

REPORT INFORMATION
  Report Type: 
  Country: None (occurrence: None)
  Receive Date: 20080813
  Receipt Date: 20080806
  Transmission Date: 20090109
  Serious: Yes (Hospitalization)
  Sender: FDA-Public Use
  Company Number: US-BRISTOL-MYERS SQUIBB COMPANY-14290928

PATIENT
  Age: 51 Year
  Sex: Male
  Weight: 66 kg

DRUGS (14)
  1. CISPLATIN [Suspect]
     Indication: LARYNGEAL CANCER
     Dosage: START DATE OF 1ST COURSE: 23JUN08.
     Dates: start: 20080714, end: 20080714
  2. RADIATION THERAPY [Suspect]
     Indication: LARYNGEAL CANCER
     Dosage: 1 DOSAGE FORM = 5000 CGY; NUMBER OF FRACTIONS: 25; NO OF ELAPSED DAYS 31.
     Dates: start: 20080724, end: 20080724
  3. ATIVAN [Concomitant]
  4. CARTIA XT [Concomitant]
  5. COMPAZINE [Concomitant]
  6. ACETAMINOPHEN AND HYDROCODONE BITARTRATE [Concomitant]
  7. LEVOTHYROXINE SODIUM [Concomitant]
  8. LISINOPRIL [Concomitant]
  9. ROXANOL [Concomitant]
  10. TYLENOL [Concomitant]
  11. MANNITOL [Concomitant]
  12. DECADRON SRC [Concomitant]
  13. ALOXI [Concomitant]
  14. DEXTROSE + SALINE [Concomitant]

REACTIONS (8)
  - DEHYDRATION [None]
  - DRY MOUTH [None]
  - DYSPHAGIA [None]
  - FATIGUE [None]
  - NAUSEA [None]
  - OROPHARYNGEAL PAIN [None]
  - STOMATITIS [None]
  - VOMITING [None]
